FAERS Safety Report 8592182-5 (Version None)
Quarter: 2012Q3

REPORT INFORMATION
  Report Type: 
  Country: None (occurrence: None)
  Receive Date: 20120814
  Receipt Date: 20120806
  Transmission Date: 20120928
  Serious: No
  Sender: FDA-Public Use
  Company Number: US-ELI_LILLY_AND_COMPANY-US201208001999

PATIENT
  Age: 79 Year
  Sex: Female

DRUGS (2)
  1. LIPITOR [Concomitant]
  2. CYMBALTA [Suspect]
     Indication: DEPRESSION
     Dosage: 60 MG, UNKNOWN

REACTIONS (3)
  - HEPATIC ENZYME INCREASED [None]
  - BLISTER [None]
  - PRURITUS [None]
